FAERS Safety Report 7365999-2 (Version None)
Quarter: 2011Q1

REPORT INFORMATION
  Report Type: 
  Country: None (occurrence: None)
  Receive Date: 20110322
  Receipt Date: 20110311
  Transmission Date: 20110831
  Serious: Yes (Hospitalization)
  Sender: FDA-Public Use
  Company Number: IT-SANOFI-AVENTIS-2011SA014725

PATIENT
  Age: 89 Year
  Sex: Female

DRUGS (5)
  1. LANSOX [Concomitant]
  2. OLMESARTAN MEDOXOMIL [Concomitant]
  3. LASIX [Suspect]
     Route: 048
     Dates: start: 20110103, end: 20110205
  4. NITROCOR [Concomitant]
  5. TACHIDOL [Concomitant]

REACTIONS (2)
  - CARDIAC FAILURE CONGESTIVE [None]
  - PULMONARY CONGESTION [None]
